FAERS Safety Report 4297461-8 (Version None)
Quarter: 2004Q1

REPORT INFORMATION
  Report Type: 
  Country: None (occurrence: None)
  Receive Date: 20040213
  Receipt Date: 20040203
  Transmission Date: 20041129
  Serious: Yes (Death, Hospitalization)
  Sender: FDA-Public Use
  Company Number: 04P-163-0249142-00

PATIENT
  Age: 70 Year
  Sex: Female

DRUGS (12)
  1. HUMIRA [Suspect]
     Dosage: 40 MG, SUBCUTANEOUS
     Route: 058
     Dates: start: 20030401, end: 20040101
  2. PREDNISONE [Concomitant]
  3. DURGESIC [Concomitant]
  4. COUMADIN [Concomitant]
  5. MORPHINE SULFATE [Concomitant]
  6. ALENDRONATE SODIUM [Concomitant]
  7. LANSOPRAZOLE [Concomitant]
  8. RALOXIPHENE HYDROCHLORIDE [Concomitant]
  9. VENLAFAXINE HCL [Concomitant]
  10. SALBUTAMOL [Concomitant]
  11. OXYGEN [Concomitant]
  12. IPRATROPIUM BROMIDE [Concomitant]

REACTIONS (2)
  - COMPRESSION FRACTURE [None]
  - PULMONARY EMBOLISM [None]
